FAERS Safety Report 14619182 (Version 1)
Quarter: 2018Q1

REPORT INFORMATION
  Report Type: Spontaneous
  Country: BR (occurrence: BR)
  Receive Date: 20180309
  Receipt Date: 20180309
  Transmission Date: 20180509
  Serious: Yes (Other)
  Sender: FDA-Public Use
  Company Number: BR-ELI_LILLY_AND_COMPANY-BR201803000303

PATIENT
  Age: 13 Year
  Sex: Male
  Weight: 55 kg

DRUGS (2)
  1. INSULIN GLARGINE [Suspect]
     Active Substance: INSULIN GLARGINE
     Indication: TYPE 1 DIABETES MELLITUS
     Dosage: UNK, UNKNOWN
     Route: 065
  2. INSULIN [Concomitant]
     Active Substance: INSULIN NOS

REACTIONS (11)
  - Acidosis [Recovered/Resolved]
  - Mucous membrane disorder [Unknown]
  - Hyperglycaemia [Recovered/Resolved]
  - Tachycardia [Unknown]
  - Ketonuria [Recovered/Resolved]
  - Diabetes mellitus inadequate control [Unknown]
  - Tachypnoea [Unknown]
  - Pharyngeal erythema [Unknown]
  - Blood potassium decreased [Recovered/Resolved]
  - Leukocytosis [Unknown]
  - Acetonaemia [Recovered/Resolved]
